FAERS Safety Report 23666739 (Version 1)
Quarter: 2024Q1

REPORT INFORMATION
  Report Type: Spontaneous
  Country: CN (occurrence: CN)
  Receive Date: 20240325
  Receipt Date: 20240325
  Transmission Date: 20240410
  Serious: Yes (Other)
  Sender: FDA-Public Use
  Company Number: None

PATIENT
  Age: 55 Year
  Sex: Female
  Weight: 70 kg

DRUGS (3)
  1. CYCLOPHOSPHAMIDE [Suspect]
     Active Substance: CYCLOPHOSPHAMIDE
     Indication: Invasive breast carcinoma
     Dosage: 1 G, ONE TIME IN ONE DAY, DILUTED WITH 100 MG OF SODIUM CHLORIDE
     Route: 041
     Dates: start: 20240314, end: 20240314
  2. CYCLOPHOSPHAMIDE [Suspect]
     Active Substance: CYCLOPHOSPHAMIDE
     Indication: Breast cancer female
  3. SODIUM CHLORIDE [Suspect]
     Active Substance: SODIUM CHLORIDE
     Indication: Medication dilution
     Dosage: 100 MG, ONE TIME IN ONE DAY, USED TO DILUTE 1G OF CYCLOPHOSPHAMIDE
     Route: 041
     Dates: start: 20240314, end: 20240314

REACTIONS (3)
  - Gastrointestinal disorder [Recovering/Resolving]
  - Nausea [Recovering/Resolving]
  - Vomiting [Recovering/Resolving]

NARRATIVE: CASE EVENT DATE: 20240315
